FAERS Safety Report 7146127-5 (Version None)
Quarter: 2010Q4

REPORT INFORMATION
  Report Type: 
  Country: None (occurrence: None)
  Receive Date: 20101208
  Receipt Date: 20101118
  Transmission Date: 20110411
  Serious: No
  Sender: FDA-Public Use
  Company Number: US-B.I. PHARMACEUTICALS,INC./RIDGEFIELD-2010-BP-13015BP

PATIENT
  Sex: Female

DRUGS (5)
  1. PRADAXA [Suspect]
     Indication: ATRIAL FIBRILLATION
     Dosage: 300 MG
     Route: 048
     Dates: start: 20101101
  2. TOPROL-XL [Concomitant]
     Indication: HYPERTENSION
     Route: 048
  3. DIGOXIN [Concomitant]
     Route: 048
  4. DARZOLAMIDE [Concomitant]
     Route: 061
     Dates: start: 20101105
  5. MEDICATION NOT FURTHER SPECIFIED [Concomitant]
     Indication: MACULAR DEGENERATION

REACTIONS (2)
  - NASAL CONGESTION [None]
  - THYROID DISORDER [None]
